FAERS Safety Report 19400621 (Version 2)
Quarter: 2021Q2

REPORT INFORMATION
  Report Type: Spontaneous
  Country: US (occurrence: US)
  Receive Date: 20210610
  Receipt Date: 20210622
  Transmission Date: 20210717
  Serious: No
  Sender: FDA-Public Use
  Company Number: US-JNJFOC-20210616720

PATIENT

DRUGS (3)
  1. INVEGA TRINZA [Suspect]
     Active Substance: PALIPERIDONE PALMITATE
  2. INVEGA TRINZA [Suspect]
     Active Substance: PALIPERIDONE PALMITATE
  3. INVEGA TRINZA [Suspect]
     Active Substance: PALIPERIDONE PALMITATE
     Indication: PRODUCT USED FOR UNKNOWN INDICATION
     Dosage: STRENGTH: UNKNOWN
     Route: 030

REACTIONS (2)
  - Needle issue [Unknown]
  - Underdose [Unknown]
